FAERS Safety Report 7639115-3 (Version None)
Quarter: 2011Q3

REPORT INFORMATION
  Report Type: 
  Country: None (occurrence: None)
  Receive Date: 20110726
  Receipt Date: 20110726
  Transmission Date: 20111222
  Serious: No
  Sender: FDA-Public Use
  Company Number: None

PATIENT
  Age: 31 Year
  Sex: Female
  Weight: 63.5036 kg

DRUGS (1)
  1. NASONEX [Suspect]
     Indication: CHRONIC SINUSITIS
     Dosage: 1 OR 2 SPRAYS 1 X DAY NASAL
     Route: 045
     Dates: start: 20100701, end: 20110601

REACTIONS (1)
  - SENSORY DISTURBANCE [None]
